FAERS Safety Report 14332026 (Version 1)
Quarter: 2017Q4

REPORT INFORMATION
  Report Type: Spontaneous
  Country: US (occurrence: US)
  Receive Date: 20171227
  Receipt Date: 20171227
  Transmission Date: 20180321
  Serious: No
  Sender: FDA-Public Use
  Company Number: None

PATIENT
  Sex: Female
  Weight: 85.5 kg

DRUGS (6)
  1. CELECOXIFIB [Suspect]
     Active Substance: CELECOXIB
     Indication: BACK PAIN
     Dosage: ?          QUANTITY:1 CAPSULE(S);?
     Route: 048
     Dates: start: 20120501, end: 20171125
  2. TYLENOL [Concomitant]
     Active Substance: ACETAMINOPHEN
  3. PROTONIX [Concomitant]
     Active Substance: PANTOPRAZOLE SODIUM
  4. CELECOXIFIB [Suspect]
     Active Substance: CELECOXIB
     Indication: ARTHRITIS
     Dosage: ?          QUANTITY:1 CAPSULE(S);?
     Route: 048
     Dates: start: 20120501, end: 20171125
  5. TRAMADOL. [Concomitant]
     Active Substance: TRAMADOL
  6. ZYRTEC [Concomitant]
     Active Substance: CETIRIZINE HYDROCHLORIDE

REACTIONS (5)
  - Dyspepsia [None]
  - Constipation [None]
  - Rectal haemorrhage [None]
  - Haemorrhoids [None]
  - Neuralgia [None]

NARRATIVE: CASE EVENT DATE: 20171010
